FAERS Safety Report 24169777 (Version 1)
Quarter: 2024Q3

REPORT INFORMATION
  Report Type: Spontaneous
  Country: DE (occurrence: DE)
  Receive Date: 20240803
  Receipt Date: 20240803
  Transmission Date: 20241017
  Serious: Yes (Other)
  Sender: ABBVIE
  Company Number: DE-CAMURUS AB-DE-CAM-24-00634

PATIENT
  Age: 52 Year
  Sex: Female

DRUGS (2)
  1. GLECAPREVIR\PIBRENTASVIR [Suspect]
     Active Substance: GLECAPREVIR\PIBRENTASVIR
     Indication: Hepatitis C
     Dosage: 100 MG/40 MG
     Route: 065
  2. BUPRENORPHINE [Suspect]
     Active Substance: BUPRENORPHINE
     Indication: Product used for unknown indication
     Dosage: UNK
     Route: 065
     Dates: start: 20230220

REACTIONS (5)
  - Drug dependence [Unknown]
  - Injection site erythema [Unknown]
  - Injection site pruritus [Unknown]
  - Weight increased [Unknown]
  - Poor quality sleep [Unknown]
